FAERS Safety Report 9642972 (Version 1)
Quarter: 2013Q4

REPORT INFORMATION
  Report Type: Spontaneous
  Country: US (occurrence: US)
  Receive Date: 20131024
  Receipt Date: 20131024
  Transmission Date: 20140711
  Serious: Yes (Other)
  Sender: FDA-Public Use
  Company Number: US-SA-2013SA105998

PATIENT
  Age: 79 Year
  Sex: Female

DRUGS (1)
  1. ALLEGRA [Suspect]
     Route: 065

REACTIONS (2)
  - Cardiac disorder [Unknown]
  - Blood pressure increased [Unknown]
